FAERS Safety Report 4329895-7 (Version None)
Quarter: 2004Q1

REPORT INFORMATION
  Report Type: 
  Country: None (occurrence: None)
  Receive Date: 20040329
  Receipt Date: 20040315
  Transmission Date: 20041129
  Serious: Yes (Hospitalization)
  Sender: FDA-Public Use
  Company Number: 2004CG00531

PATIENT
  Age: 64 Year
  Sex: Male
  Weight: 70 kg

DRUGS (7)
  1. NEXIUM [Suspect]
     Dosage: 40 MG DAILY PO
     Route: 048
  2. PLAVIX [Suspect]
     Indication: ARTERIAL DISORDER
     Dosage: 75 MG DAILY PO
     Route: 048
     Dates: start: 20030110, end: 20030828
  3. SPIRONOLACTONE ^RATIOPHARM^ [Suspect]
     Indication: ESSENTIAL HYPERTENSION
     Dosage: 50 MG DAILY PO
     Route: 048
     Dates: start: 20030124, end: 20030828
  4. COZAAR [Suspect]
     Indication: ESSENTIAL HYPERTENSION
     Dosage: 50 MG DAILY PO
     Route: 048
  5. KARDEGIC [Suspect]
     Indication: ARTERIAL DISORDER
     Dosage: 160 MG DAILY PO
     Route: 048
  6. PREDNISONE [Suspect]
     Indication: MYALGIA
     Dosage: 20 MG DAILY PO
     Route: 048
     Dates: start: 20021210
  7. PREDNISONE [Suspect]
     Indication: MYOSITIS
     Dosage: 20 MG DAILY PO
     Route: 048
     Dates: start: 20021210

REACTIONS (3)
  - DERMATITIS ALLERGIC [None]
  - SYSTEMIC LUPUS ERYTHEMATOSUS [None]
  - TOXIC SKIN ERUPTION [None]
